FAERS Safety Report 10711106 (Version 2)
Quarter: 2015Q1

REPORT INFORMATION
  Report Type: Spontaneous
  Country: US (occurrence: US)
  Receive Date: 20150114
  Receipt Date: 20150217
  Transmission Date: 20150721
  Serious: Yes (Hospitalization, Other)
  Sender: FDA-Public Use
  Company Number: US-ELI_LILLY_AND_COMPANY-US201501003199

PATIENT
  Sex: Male

DRUGS (14)
  1. CLONIDINE. [Concomitant]
     Active Substance: CLONIDINE
  2. ASPIRIN                            /00002701/ [Concomitant]
     Active Substance: ASPIRIN
  3. ACETAMINOPHEN. [Concomitant]
     Active Substance: ACETAMINOPHEN
  4. METOPROLOL [Concomitant]
     Active Substance: METOPROLOL
  5. FUROSEMIDE. [Concomitant]
     Active Substance: FUROSEMIDE
  6. LORATADINE. [Concomitant]
     Active Substance: LORATADINE
  7. VITAMIN B12 [Concomitant]
     Active Substance: CYANOCOBALAMIN
  8. HUMALOG [Suspect]
     Active Substance: INSULIN LISPRO
     Indication: DIABETES MELLITUS
     Dosage: UNK
     Route: 058
  9. PLAVIX [Concomitant]
     Active Substance: CLOPIDOGREL BISULFATE
  10. ENALAPRIL [Concomitant]
     Active Substance: ENALAPRIL
  11. SIMVASTATIN. [Concomitant]
     Active Substance: SIMVASTATIN
  12. RANITIDINE [Concomitant]
     Active Substance: RANITIDINE\RANITIDINE HYDROCHLORIDE
  13. SYNTHROID [Concomitant]
     Active Substance: LEVOTHYROXINE SODIUM
  14. AMLODIPINE [Concomitant]
     Active Substance: AMLODIPINE BESYLATE

REACTIONS (9)
  - Localised infection [Unknown]
  - Renal disorder [Unknown]
  - Cerebrovascular accident [Unknown]
  - Balance disorder [Not Recovered/Not Resolved]
  - Coronary artery occlusion [Unknown]
  - Memory impairment [Not Recovered/Not Resolved]
  - Hearing impaired [Unknown]
  - Cardiac procedure complication [Unknown]
  - Phantom pain [Not Recovered/Not Resolved]
